FAERS Safety Report 22234927 (Version 1)
Quarter: 2023Q2

REPORT INFORMATION
  Report Type: Spontaneous
  Country: US (occurrence: None)
  Receive Date: 20230419
  Receipt Date: 20230419
  Transmission Date: 20230721
  Serious: No
  Sender: FDA-Public Use
  Company Number: None

PATIENT
  Age: 74 Year
  Sex: Male
  Weight: 75.3 kg

DRUGS (18)
  1. ABIRATERONE ACETATE [Suspect]
     Active Substance: ABIRATERONE ACETATE
     Indication: Prostate cancer
     Dosage: 1000MG DAILY ORAL
     Route: 048
     Dates: start: 20230208
  2. ATORVASTATIN [Concomitant]
     Active Substance: ATORVASTATIN
  3. BENEFIBER PREBIOTIC AND PROBIOTIC [Concomitant]
  4. CARNITORCBD-HEMP OIL [Concomitant]
  5. HERBALS [Concomitant]
     Active Substance: HERBALS
  6. FLECAINIDE [Concomitant]
     Active Substance: FLECAINIDE
  7. TYROSINE [Concomitant]
     Active Substance: TYROSINE
  8. LIONS MANE MUSHROOM [Concomitant]
  9. LOSARTAN [Concomitant]
     Active Substance: LOSARTAN
  10. LUPRON DEPOT [Concomitant]
     Active Substance: LEUPROLIDE ACETATE
  11. PREDNISONE [Concomitant]
     Active Substance: PREDNISONE
  12. OMEGA-3 ACIDS [Concomitant]
     Active Substance: OMEGA-3 FATTY ACIDS
  13. PRDNISONE [Concomitant]
  14. SPIIRNOLACTONE [Concomitant]
  15. TYLENOL [Concomitant]
     Active Substance: ACETAMINOPHEN
  16. VITAMIN B-COMPLEX [Concomitant]
     Active Substance: DEXPANTHENOL\NIACINAMIDE\PYRIDOXINE HYDROCHLORIDE\RIBOFLAVIN 5^-PHOSPHATE SODIUM\THIAMINE HYDROCHLOR
  17. VITAMIN D3 [Concomitant]
     Active Substance: CHOLECALCIFEROL
  18. VIATMIN B-COMPLEX [Concomitant]

REACTIONS (5)
  - Pyrexia [None]
  - White blood cell count decreased [None]
  - Neutropenia [None]
  - Pulmonary embolism [None]
  - Blood potassium decreased [None]
